FAERS Safety Report 20119514 (Version 1)
Quarter: 2021Q4

REPORT INFORMATION
  Report Type: Spontaneous
  Country: US (occurrence: None)
  Receive Date: 20211126
  Receipt Date: 20211126
  Transmission Date: 20220303
  Serious: Yes (Life-Threatening, Hospitalization, Other)
  Sender: FDA-Public Use
  Company Number: 2021A824244

PATIENT
  Age: 711 Month
  Sex: Male
  Weight: 86.2 kg

DRUGS (2)
  1. CRESTOR [Suspect]
     Active Substance: ROSUVASTATIN CALCIUM
     Indication: Blood cholesterol increased
     Route: 048
  2. CRESTOR [Suspect]
     Active Substance: ROSUVASTATIN CALCIUM
     Indication: Blood cholesterol increased
     Dosage: ROSUVASTATIN CALCIUM
     Route: 048

REACTIONS (20)
  - Myocardial infarction [Unknown]
  - Blood triglycerides abnormal [Unknown]
  - Chest discomfort [Recovered/Resolved]
  - Pancreatitis [Unknown]
  - Type 2 diabetes mellitus [Not Recovered/Not Resolved]
  - Gait disturbance [Not Recovered/Not Resolved]
  - Contusion [Unknown]
  - Muscle rupture [Not Recovered/Not Resolved]
  - Muscle enzyme decreased [Unknown]
  - Vitamin D decreased [Recovered/Resolved]
  - Cardiac disorder [Unknown]
  - Glucose tolerance impaired [Unknown]
  - Pain [Not Recovered/Not Resolved]
  - COVID-19 [Recovered/Resolved]
  - Muscular weakness [Recovered/Resolved]
  - Amnesia [Recovered/Resolved]
  - Depression [Unknown]
  - Muscle spasms [Not Recovered/Not Resolved]
  - Pain in extremity [Unknown]
  - Drug ineffective [Unknown]

NARRATIVE: CASE EVENT DATE: 20201101
